FAERS Safety Report 15667079 (Version 2)
Quarter: 2019Q2

REPORT INFORMATION
  Report Type: Spontaneous
  Country: US (occurrence: US)
  Receive Date: 20181128
  Receipt Date: 20190605
  Transmission Date: 20190711
  Serious: No
  Sender: FDA-Public Use
  Company Number: US-ROCHE-2189395

PATIENT
  Age: 51 Year
  Sex: Female
  Weight: 70.37 kg

DRUGS (3)
  1. OCREVUS [Suspect]
     Active Substance: OCRELIZUMAB
     Indication: PRIMARY PROGRESSIVE MULTIPLE SCLEROSIS
     Route: 042
     Dates: start: 201709
  2. OCREVUS [Suspect]
     Active Substance: OCRELIZUMAB
     Route: 042
     Dates: start: 20180914
  3. SOLU-MEDROL [Suspect]
     Active Substance: METHYLPREDNISOLONE SODIUM SUCCINATE
     Indication: PRODUCT USED FOR UNKNOWN INDICATION
     Route: 065

REACTIONS (2)
  - Depression [Recovered/Resolved]
  - Dry mouth [Unknown]

NARRATIVE: CASE EVENT DATE: 20180915
